FAERS Safety Report 17888299 (Version 1)
Quarter: 2020Q2

REPORT INFORMATION
  Report Type: Spontaneous
  Country: SE (occurrence: SE)
  Receive Date: 20200612
  Receipt Date: 20200612
  Transmission Date: 20200714
  Serious: Yes (Other)
  Sender: FDA-Public Use
  Company Number: SE-ACCORD-185193

PATIENT
  Age: 69 Year
  Sex: Female

DRUGS (1)
  1. MONTELUKAST [Suspect]
     Active Substance: MONTELUKAST SODIUM
     Indication: PRODUCT USED FOR UNKNOWN INDICATION
     Dosage: 10 MG 1TN
     Dates: start: 20200505, end: 20200515

REACTIONS (3)
  - Hallucination, visual [Recovered/Resolved]
  - Headache [Recovered/Resolved]
  - Migraine with aura [Recovered/Resolved]

NARRATIVE: CASE EVENT DATE: 20200505
